FAERS Safety Report 6261387-0 (Version None)
Quarter: 2009Q3

REPORT INFORMATION
  Report Type: 
  Country: None (occurrence: None)
  Receive Date: 20090709
  Receipt Date: 20090626
  Transmission Date: 20100115
  Serious: Yes (Other)
  Sender: FDA-Public Use
  Company Number: GB-ASTRAZENECA-2009GB00886

PATIENT
  Age: 20407 Day
  Sex: Female
  Weight: 66 kg

DRUGS (2)
  1. CRESTOR [Suspect]
     Indication: BLOOD CHOLESTEROL INCREASED
     Route: 048
     Dates: start: 20081020, end: 20090301
  2. ELTROXIN [Concomitant]
     Indication: HYPOTHYROIDISM
     Dosage: STARTED YEARS AGO

REACTIONS (1)
  - LIVER FUNCTION TEST ABNORMAL [None]
